FAERS Safety Report 11135198 (Version 3)
Quarter: 2015Q2

REPORT INFORMATION
  Report Type: Spontaneous
  Country: JP (occurrence: JP)
  Receive Date: 20150525
  Receipt Date: 20150617
  Transmission Date: 20150821
  Serious: Yes (Death)
  Sender: FDA-Public Use
  Company Number: JP-009507513-1505JPN010690

PATIENT

DRUGS (1)
  1. ESLAX [Suspect]
     Active Substance: ROCURONIUM BROMIDE
     Dosage: 60 ML, QD,DIVIDED DOSE FREQUENCY UNKNOWN
     Route: 042
     Dates: start: 20141007, end: 20141007

REACTIONS (1)
  - Road traffic accident [Fatal]

NARRATIVE: CASE EVENT DATE: 20150304
